FAERS Safety Report 4957949-0 (Version None)
Quarter: 2006Q1

REPORT INFORMATION
  Report Type: 
  Country: None (occurrence: None)
  Receive Date: 20060330
  Receipt Date: 20060320
  Transmission Date: 20060701
  Serious: Yes (Hospitalization)
  Sender: FDA-Public Use
  Company Number: PHNU2006DE01369

PATIENT
  Sex: Male

DRUGS (4)
  1. CO-DIOVAN [Suspect]
     Dosage: 160 MG/D
     Route: 048
  2. TEGRETOL [Suspect]
     Dosage: 200 MG/D
     Route: 048
     Dates: end: 20050516
  3. HALDOL [Concomitant]
     Dosage: 2 MG/D
     Route: 048
     Dates: end: 20050429
  4. DOXACOR [Concomitant]
     Indication: HYPERTENSION
     Dosage: 4 MG/D
     Route: 048
     Dates: end: 20050607

REACTIONS (8)
  - BLOOD CREATININE INCREASED [None]
  - BLOOD UREA INCREASED [None]
  - HYPOKALAEMIA [None]
  - HYPONATRAEMIA [None]
  - LOSS OF CONSCIOUSNESS [None]
  - MANIA [None]
  - SCHIZOAFFECTIVE DISORDER [None]
  - URINARY INCONTINENCE [None]
